FAERS Safety Report 5939277-X (Version None)
Quarter: 2008Q4

REPORT INFORMATION
  Report Type: 
  Country: None (occurrence: None)
  Receive Date: 20081103
  Receipt Date: 20081022
  Transmission Date: 20090506
  Serious: Yes (Other)
  Sender: FDA-Public Use
  Company Number: GB-PFIZER INC-2008084706

PATIENT
  Sex: Female
  Weight: 85 kg

DRUGS (1)
  1. CHAMPIX [Suspect]
     Indication: SMOKING CESSATION THERAPY
     Route: 048
     Dates: start: 20080915, end: 20081014

REACTIONS (3)
  - DEPRESSED MOOD [None]
  - MENTAL DISORDER [None]
  - TEARFULNESS [None]
